FAERS Safety Report 7205912-1 (Version None)
Quarter: 2011Q1

REPORT INFORMATION
  Report Type: 
  Country: None (occurrence: None)
  Receive Date: 20110102
  Receipt Date: 20101223
  Transmission Date: 20110831
  Serious: Yes (Other)
  Sender: FDA-Public Use
  Company Number: FR-AMGEN-FRASP2010012291

PATIENT

DRUGS (4)
  1. BREXIN [Concomitant]
     Dosage: UNK
     Dates: start: 20080101, end: 20101121
  2. ARAVA [Concomitant]
     Dosage: UNK
  3. ACETAMINOPHEN W/ PROPOXYPHENE HCL [Concomitant]
     Dosage: UNK
  4. ENBREL [Suspect]
     Indication: PSORIATIC ARTHROPATHY
     Dosage: 50 MG, WEEKLY
     Dates: start: 20101122

REACTIONS (2)
  - ARTHRALGIA [None]
  - HEPATITIS [None]
